FAERS Safety Report 5734137-1 (Version None)
Quarter: 2008Q2

REPORT INFORMATION
  Report Type: 
  Country: None (occurrence: None)
  Receive Date: 20080509
  Receipt Date: 20080501
  Transmission Date: 20081010
  Serious: Yes (Other)
  Sender: FDA-Public Use
  Company Number: US-ASTRAZENECA-2008UW09053

PATIENT
  Age: 66 Year
  Sex: Male

DRUGS (13)
  1. CRESTOR [Suspect]
     Indication: BLOOD CHOLESTEROL INCREASED
     Route: 048
     Dates: start: 20030101
  2. PREDNISONE TAB [Concomitant]
  3. FOSAMAX [Concomitant]
  4. FORADIL [Concomitant]
  5. SINGULAIR [Concomitant]
  6. GABAPENTIN [Concomitant]
  7. COZAAR [Concomitant]
  8. SPIRIVA [Concomitant]
  9. LASIX [Concomitant]
  10. ATENOLOL [Concomitant]
  11. UNIPHYL [Concomitant]
  12. FLOVENT [Concomitant]
  13. XOPENEX [Concomitant]

REACTIONS (3)
  - MYALGIA [None]
  - POLYMYALGIA RHEUMATICA [None]
  - RED BLOOD CELL SEDIMENTATION RATE INCREASED [None]
